FAERS Safety Report 8069070-6 (Version None)
Quarter: 2012Q1

REPORT INFORMATION
  Report Type: 
  Country: None (occurrence: None)
  Receive Date: 20120125
  Receipt Date: 20120117
  Transmission Date: 20120608
  Serious: Yes (Hospitalization)
  Sender: FDA-Public Use
  Company Number: US-CELGENEUS-163-21880-11123188

PATIENT
  Sex: Female

DRUGS (3)
  1. REVLIMID [Suspect]
     Indication: MULTIPLE MYELOMA
     Dosage: 20 MILLIGRAM
     Route: 048
     Dates: start: 20110301
  2. VELCADE [Concomitant]
     Indication: MULTIPLE MYELOMA
     Dosage: 2.2 MILLIGRAM
     Route: 041
     Dates: start: 20101001
  3. DECADRON [Concomitant]
     Route: 065
     Dates: start: 20101001

REACTIONS (1)
  - ADVERSE EVENT [None]
